FAERS Safety Report 8031042-5 (Version None)
Quarter: 2012Q1

REPORT INFORMATION
  Report Type: 
  Country: None (occurrence: None)
  Receive Date: 20120109
  Receipt Date: 20120106
  Transmission Date: 20120608
  Serious: No
  Sender: FDA-Public Use
  Company Number: US-PFIZER INC-2012004990

PATIENT
  Sex: Female
  Weight: 63.49 kg

DRUGS (5)
  1. METOPROLOL [Concomitant]
     Dosage: UNK
  2. VITAMIN TAB [Concomitant]
     Dosage: UNK
  3. LIPITOR [Suspect]
     Dosage: UNK
     Route: 048
     Dates: start: 19910101, end: 19910101
  4. OMEPRAZOLE [Concomitant]
     Dosage: 20 MG, DAILY
  5. LORAZEPAM [Concomitant]
     Dosage: 0.5 MG, DAILY

REACTIONS (1)
  - MUSCLE SPASMS [None]
